FAERS Safety Report 6457596-8 (Version None)
Quarter: 2009Q4

REPORT INFORMATION
  Report Type: 
  Country: None (occurrence: None)
  Receive Date: 20091125
  Receipt Date: 20091113
  Transmission Date: 20100525
  Serious: Yes (Other)
  Sender: FDA-Public Use
  Company Number: GB-JNJFOC-20090304386

PATIENT
  Age: 74 Year
  Sex: Female

DRUGS (5)
  1. TRAMADOL HCL [Suspect]
     Indication: ARTHRALGIA
     Route: 048
  2. SINEMET [Concomitant]
     Indication: PARKINSON'S DISEASE
     Route: 065
  3. ROPINIROLE [Concomitant]
     Indication: PARKINSON'S DISEASE
     Route: 065
  4. CODEINE [Concomitant]
     Route: 065
  5. BUPRENORPHINE [Concomitant]

REACTIONS (1)
  - PARKINSON'S DISEASE [None]
